FAERS Safety Report 20531720 (Version 2)
Quarter: 2025Q1

REPORT INFORMATION
  Report Type: Spontaneous
  Country: US (occurrence: US)
  Receive Date: 20220301
  Receipt Date: 20250103
  Transmission Date: 20250408
  Serious: Yes (Hospitalization)
  Sender: SANOFI AVENTIS
  Company Number: US-SANOFI-00988788

PATIENT
  Age: 76 Year
  Sex: Female

DRUGS (2)
  1. LANTUS [Suspect]
     Active Substance: INSULIN GLARGINE
     Indication: Type 2 diabetes mellitus
     Dosage: 23 IU, QD
     Route: 058
  2. LANTUS [Suspect]
     Active Substance: INSULIN GLARGINE
     Dosage: 30 U, QD
     Route: 058

REACTIONS (2)
  - Surgery [Unknown]
  - Eye infection [Unknown]
